FAERS Safety Report 15201298 (Version 1)
Quarter: 2018Q3

REPORT INFORMATION
  Report Type: Other
  Country: FR (occurrence: FR)
  Receive Date: 20180726
  Receipt Date: 20180726
  Transmission Date: 20181010
  Serious: Yes (Hospitalization, Other)
  Sender: FDA-Public Use
  Company Number: FR-MACLEODS PHARMACEUTICALS US LTD-MAC2018015675

PATIENT

DRUGS (7)
  1. ESIDREX [Suspect]
     Active Substance: HYDROCHLOROTHIAZIDE
     Indication: HYPERTENSION
     Dosage: 0.5 DOSAGE FORM, QD
     Dates: end: 20160214
  2. CEFEPIME [Suspect]
     Active Substance: CEFEPIME HYDROCHLORIDE
     Indication: SEPSIS
     Dosage: 6 GRAM, QD
     Route: 042
     Dates: start: 20160205, end: 20160211
  3. ALDACTONE [Suspect]
     Active Substance: SPIRONOLACTONE
     Indication: HYPERTENSION
     Dosage: 25 MILLIGRAM, QD
     Route: 048
     Dates: end: 20160214
  4. LEVOFLOXACIN 500 MG [Suspect]
     Active Substance: LEVOFLOXACIN
     Indication: SEPSIS
     Dosage: 500 MILLIGRAM, QD
     Route: 048
     Dates: start: 20160211
  5. FUROSEMIDE. [Suspect]
     Active Substance: FUROSEMIDE
     Indication: HYPERTENSION
     Dosage: EN ALTERNANCE 250 MG OU 125 MG (UN JOUR SUR DEUX), 2 DAY
     Route: 048
  6. GENTAMICINE [Suspect]
     Active Substance: GENTAMICIN
     Indication: SEPSIS
     Dosage: 300 MILLIGRAM, QD
     Route: 042
     Dates: start: 20160204, end: 20160209
  7. PERINDOPRIL [Suspect]
     Active Substance: PERINDOPRIL
     Indication: HYPERTENSION
     Dosage: 12 MILLIGRAM, QD
     Route: 048
     Dates: end: 20160214

REACTIONS (2)
  - Renal tubular necrosis [Recovering/Resolving]
  - Acute kidney injury [Recovering/Resolving]

NARRATIVE: CASE EVENT DATE: 20160214
